FAERS Safety Report 5892307-6 (Version None)
Quarter: 2008Q3

REPORT INFORMATION
  Report Type: 
  Country: None (occurrence: None)
  Receive Date: 20080919
  Receipt Date: 20080910
  Transmission Date: 20090109
  Serious: Yes (Hospitalization)
  Sender: FDA-Public Use
  Company Number: 2008-03324

PATIENT
  Age: 64 Year
  Sex: Male

DRUGS (6)
  1. VELCADE [Suspect]
     Indication: NON-HODGKIN'S LYMPHOMA
     Dosage: 1.5 MG/M2, IV BOLUS
     Route: 040
     Dates: start: 20070511, end: 20070520
  2. RITUXIMAB(RITUXIMAB) INJECTION, 375MG/M2 [Suspect]
     Indication: NON-HODGKIN'S LYMPHOMA
  3. CARMUSTINE [Suspect]
     Indication: NON-HODGKIN'S LYMPHOMA
     Dates: start: 20070516, end: 20070521
  4. ETOPOSIDE [Suspect]
     Indication: NON-HODGKIN'S LYMPHOMA
     Dates: start: 20070516, end: 20070521
  5. CYTARABINE [Suspect]
     Indication: NON-HODGKIN'S LYMPHOMA
     Dates: start: 20070516, end: 20070521
  6. MELPHALAN(MELPHALAN) VIAL [Suspect]
     Indication: NON-HODGKIN'S LYMPHOMA
     Dates: start: 20070516, end: 20070521

REACTIONS (3)
  - DIARRHOEA [None]
  - METABOLIC ACIDOSIS [None]
  - RENAL FAILURE ACUTE [None]
